FAERS Safety Report 5188828-4 (Version None)
Quarter: 2006Q4

REPORT INFORMATION
  Report Type: 
  Country: None (occurrence: None)
  Receive Date: 20061214
  Receipt Date: 20061206
  Transmission Date: 20070319
  Serious: Yes (Other)
  Sender: FDA-Public Use
  Company Number: 231772

PATIENT
  Age: 49 Year
  Sex: Female
  Weight: 74.8 kg

DRUGS (5)
  1. RAPTIVA [Suspect]
     Indication: PSORIASIS
     Dosage: 0.8 ML, 1/WEEK, SUBCUTANEOUS
     Route: 058
     Dates: start: 20041021
  2. WELLBUTRIN [Concomitant]
  3. AMBIEN [Concomitant]
  4. CELEXA [Concomitant]
  5. LISINOPRIL [Concomitant]

REACTIONS (1)
  - GASTRIC ULCER [None]
